FAERS Safety Report 8370855-7 (Version None)
Quarter: 2012Q2

REPORT INFORMATION
  Report Type: 
  Country: None (occurrence: None)
  Receive Date: 20120518
  Receipt Date: 20120210
  Transmission Date: 20120825
  Serious: No
  Sender: FDA-Public Use
  Company Number: US-ASTRAZENECA-2012SE12803

PATIENT

DRUGS (1)
  1. PRILOSEC OTC [Suspect]
     Route: 048
     Dates: start: 20120204, end: 20120210

REACTIONS (2)
  - DRUG EFFECT DECREASED [None]
  - LABELLED DRUG-DRUG INTERACTION MEDICATION ERROR [None]
